FAERS Safety Report 4292346-5 (Version None)
Quarter: 2004Q1

REPORT INFORMATION
  Report Type: 
  Country: None (occurrence: None)
  Receive Date: 20040211
  Receipt Date: 20040204
  Transmission Date: 20041129
  Serious: Yes (Other)
  Sender: FDA-Public Use
  Company Number: US-BRISTOL-MYERS SQUIBB COMPANY-12496576

PATIENT
  Age: 56 Year
  Sex: Male
  Weight: 71 kg

DRUGS (8)
  1. TEQUIN [Suspect]
     Indication: RESPIRATORY TRACT INFECTION
     Route: 048
     Dates: start: 20040123, end: 20040130
  2. VIDEX EC [Concomitant]
  3. KALETRA [Concomitant]
  4. VIREAD [Concomitant]
  5. EPIVIR [Concomitant]
  6. VALTREX [Concomitant]
  7. AMBIEN [Concomitant]
  8. VIAGRA [Concomitant]

REACTIONS (3)
  - JAUNDICE [None]
  - LIVER DISORDER [None]
  - LIVER FUNCTION TEST ABNORMAL [None]
